FAERS Safety Report 5335894-9 (Version None)
Quarter: 2007Q1

REPORT INFORMATION
  Report Type: 
  Country: None (occurrence: None)
  Receive Date: 20070301
  Receipt Date: 20060502
  Transmission Date: 20070707
  Serious: Yes (Hospitalization, Other)
  Sender: FDA-Public Use
  Company Number: 2006037870

PATIENT
  Age: 42 Year
  Sex: Female

DRUGS (3)
  1. RELPAX [Suspect]
     Indication: MIGRAINE
     Dosage: (40 MG)
  2. WELCHOL [Concomitant]
  3. METFORMIN HCL [Concomitant]

REACTIONS (3)
  - INSULIN RESISTANCE [None]
  - MENSTRUAL DISORDER [None]
  - MYOCARDIAL INFARCTION [None]
